FAERS Safety Report 22088468 (Version 1)
Quarter: 2023Q1

REPORT INFORMATION
  Report Type: Spontaneous
  Country: US (occurrence: None)
  Receive Date: 20230310
  Receipt Date: 20230310
  Transmission Date: 20230417
  Serious: No
  Sender: FDA-Public Use
  Company Number: None

PATIENT
  Age: 87 Year
  Sex: Female
  Weight: 71.67 kg

DRUGS (4)
  1. ENBREL [Suspect]
     Active Substance: ETANERCEPT
     Indication: Rheumatoid arthritis
     Dosage: INJECT 50MG SUBCUTANEOUSLY ONCE WEEKLY AS DIRECTED *MAY CAUSE DIZZINESS*?
     Route: 058
     Dates: start: 202208
  2. ENBREL [Suspect]
     Active Substance: ETANERCEPT
     Indication: Product used for unknown indication
  3. METHOTREXATE [Suspect]
     Active Substance: METHOTREXATE
     Indication: Rheumatoid arthritis
     Dosage: TAKE 3 TABLETS BY MOUTH ONCE WEEKLY ON THE SAME DAY EACH WEEK AS DIRECTE
     Route: 048
     Dates: start: 202208
  4. METHOTREXATE [Suspect]
     Active Substance: METHOTREXATE
     Indication: Product used for unknown indication

REACTIONS (1)
  - Malaise [None]
